FAERS Safety Report 18350071 (Version 1)
Quarter: 2020Q4

REPORT INFORMATION
  Report Type: Spontaneous
  Country: CA (occurrence: CA)
  Receive Date: 20201006
  Receipt Date: 20201006
  Transmission Date: 20210114
  Serious: Yes (Other)
  Sender: FDA-Public Use
  Company Number: CA-JNJFOC-20200945468

PATIENT
  Age: 66 Year
  Sex: Female
  Weight: 95 kg

DRUGS (3)
  1. METHOTREXATE. [Concomitant]
     Active Substance: METHOTREXATE
     Route: 065
  2. INFLIXIMAB, RECOMBINANT [Suspect]
     Active Substance: INFLIXIMAB
     Indication: RHEUMATOID ARTHRITIS
     Route: 042
  3. PREDNISONE. [Concomitant]
     Active Substance: PREDNISONE
     Route: 048

REACTIONS (12)
  - Inappropriate schedule of product administration [Unknown]
  - Product use issue [Unknown]
  - Joint swelling [Unknown]
  - Nasopharyngitis [Unknown]
  - Cystitis [Unknown]
  - Blood pressure increased [Unknown]
  - Weight increased [Unknown]
  - Discomfort [Unknown]
  - Off label use [Unknown]
  - Intentional product use issue [Unknown]
  - Cough [Unknown]
  - Blood pressure fluctuation [Unknown]
